FAERS Safety Report 4460490-5 (Version None)
Quarter: 2004Q3

REPORT INFORMATION
  Report Type: 
  Country: None (occurrence: None)
  Receive Date: 20040923
  Receipt Date: 20040913
  Transmission Date: 20050211
  Serious: Yes (Death, Other)
  Sender: FDA-Public Use
  Company Number: US-2004-026612

PATIENT
  Age: 63 Year
  Sex: Male

DRUGS (6)
  1. MAGNEVIST [Suspect]
     Indication: NUCLEAR MAGNETIC RESONANCE IMAGING
     Dosage: 18 ML, 1DOSE, INTRAVENOUS
     Route: 042
     Dates: start: 20040604, end: 20040604
  2. TOPROL-XL [Concomitant]
  3. TRAZODONE HCL [Concomitant]
  4. LOVASTATIN [Concomitant]
  5. BENICAR [Concomitant]
  6. PAXIL [Concomitant]

REACTIONS (9)
  - BLOOD PRESSURE DECREASED [None]
  - CARDIAC ARREST [None]
  - CONTRAST MEDIA REACTION [None]
  - DEPRESSED LEVEL OF CONSCIOUSNESS [None]
  - HYPERHIDROSIS [None]
  - PARAESTHESIA [None]
  - RESPIRATORY FAILURE [None]
  - SINUS BRADYCARDIA [None]
  - VOMITING [None]
